FAERS Safety Report 4490145-2 (Version None)
Quarter: 2004Q4

REPORT INFORMATION
  Report Type: 
  Country: None (occurrence: None)
  Receive Date: 20041027
  Receipt Date: 20041015
  Transmission Date: 20050328
  Serious: Yes (Hospitalization)
  Sender: FDA-Public Use
  Company Number: HQWYE895119OCT04

PATIENT
  Age: 60 Year
  Sex: Female
  Weight: 61.34 kg

DRUGS (2)
  1. PREMPRO [Suspect]
     Indication: MENOPAUSE
     Dosage: ORAL
     Route: 048
     Dates: start: 20000101, end: 20040301
  2. NICORETTE DS [Concomitant]

REACTIONS (3)
  - ASTHMA [None]
  - COLLAPSE OF LUNG [None]
  - EMPHYSEMA [None]
